FAERS Safety Report 23421893 (Version 1)
Quarter: 2024Q1

REPORT INFORMATION
  Report Type: Spontaneous
  Country: AT (occurrence: AT)
  Receive Date: 20240119
  Receipt Date: 20240119
  Transmission Date: 20240410
  Serious: Yes (Other)
  Sender: FDA-Public Use
  Company Number: AT-BAYER-2023A160651

PATIENT
  Age: 26 Year
  Sex: Female

DRUGS (2)
  1. NEXAVAR [Suspect]
     Active Substance: SORAFENIB
     Indication: Osteosarcoma metastatic
     Dosage: 400 MG, BID
     Dates: start: 20231115, end: 20231231
  2. NEXAVAR [Suspect]
     Active Substance: SORAFENIB
     Indication: Lung disorder

REACTIONS (3)
  - Osteosarcoma metastatic [None]
  - Lung neoplasm [None]
  - Off label use [None]

NARRATIVE: CASE EVENT DATE: 20231115
